FAERS Safety Report 15592367 (Version 1)
Quarter: 2018Q4

REPORT INFORMATION
  Report Type: Report from Study
  Country: None (occurrence: CA)
  Receive Date: 20181106
  Receipt Date: 20181106
  Transmission Date: 20190205
  Serious: Yes (Hospitalization)
  Sender: FDA-Public Use
  Company Number: CA-ABBVIE-18S-028-2544895-00

PATIENT
  Age: 80 Year
  Sex: Male
  Weight: 60.84 kg

DRUGS (1)
  1. LUPRON DEPOT [Suspect]
     Active Substance: LEUPROLIDE ACETATE
     Indication: PROSTATE CANCER
     Route: 030
     Dates: start: 20180725, end: 2018

REACTIONS (5)
  - Haemoglobin decreased [Unknown]
  - Weight decreased [Unknown]
  - Asthenia [Unknown]
  - Coronary artery bypass [Unknown]
  - Malaise [Unknown]

NARRATIVE: CASE EVENT DATE: 2018
